FAERS Safety Report 21334476 (Version 5)
Quarter: 2022Q4

REPORT INFORMATION
  Report Type: Report from Study
  Country: FR (occurrence: None)
  Receive Date: 20220914
  Receipt Date: 20221124
  Transmission Date: 20230113
  Serious: Yes (Hospitalization)
  Sender: FDA-Public Use
  Company Number: FR-ROCHE-3175139

PATIENT
  Age: 69 Year
  Sex: Male
  Weight: 69 kg

DRUGS (7)
  1. GLOFITAMAB [Suspect]
     Active Substance: GLOFITAMAB
     Indication: Diffuse large B-cell lymphoma
     Dosage: ON 27/JUL/2022, HE RECEIVED MOST RECENT DOSE OF GLOFITAMAB PRIOR TO AE/SAE 2.5 MG.
     Route: 042
     Dates: start: 20220727
  2. OBINUTUZUMAB [Suspect]
     Active Substance: OBINUTUZUMAB
     Indication: Diffuse large B-cell lymphoma
     Dosage: ON 13/JUL/2022, HE RECEIVED MOST RECENT DOSE OF OBINUTUZUMAB PRIOR TO AE/SAE 1000 MG.
     Route: 042
     Dates: start: 20220713
  3. GEMCITABINE [Suspect]
     Active Substance: GEMCITABINE
     Indication: Diffuse large B-cell lymphoma
     Dosage: ON 10/AUG/2022, HE RECEIVED MOST RECENT DOSE OF GEMCITABINE PRIOR TO AE/SAE 1790 MG.
     Route: 042
     Dates: start: 20220714
  4. OXALIPLATIN [Suspect]
     Active Substance: OXALIPLATIN
     Indication: Diffuse large B-cell lymphoma
     Dosage: ON 10/AUG/2022, HE RECEIVED MOST RECENT DOSE OF OXALIPLATIN PRIOR TO AE 178 MG.?ON 10/AUG/2022, HE R
     Route: 042
     Dates: start: 20220714
  5. POLARAMINE [Concomitant]
     Active Substance: DEXCHLORPHENIRAMINE MALEATE
     Route: 042
     Dates: start: 20220810, end: 20220810
  6. ACETAMINOPHEN [Concomitant]
     Active Substance: ACETAMINOPHEN
     Route: 048
     Dates: start: 20220810, end: 20220810
  7. DEXAMETHASONE [Concomitant]
     Active Substance: DEXAMETHASONE
     Route: 048
     Dates: start: 20220810, end: 20220810

REACTIONS (1)
  - Pain [Not Recovered/Not Resolved]

NARRATIVE: CASE EVENT DATE: 20220829
